FAERS Safety Report 15180977 (Version 5)
Quarter: 2020Q3

REPORT INFORMATION
  Report Type: Spontaneous
  Country: JP (occurrence: JP)
  Receive Date: 20180723
  Receipt Date: 20200810
  Transmission Date: 20201102
  Serious: Yes (Death, Other)
  Sender: FDA-Public Use
  Company Number: JP-BRISTOL-MYERS SQUIBB COMPANY-BMS-2018-068852

PATIENT
  Age: 47 Year
  Sex: Male
  Weight: 58.7 kg

DRUGS (31)
  1. NEXIUM [Concomitant]
     Active Substance: ESOMEPRAZOLE MAGNESIUM
     Dosage: 20 MILLIGRAM, QD
     Route: 048
     Dates: start: 20180513
  2. MAGLAX [MAGNESIUM OXIDE] [Concomitant]
     Indication: PRODUCT USED FOR UNKNOWN INDICATION
     Dosage: 250 MILLIGRAM, TOTAL (SINGLE)
     Route: 048
     Dates: start: 20180429, end: 20180429
  3. SYMPROIC [Concomitant]
     Active Substance: NALDEMEDINE
     Dosage: 0.2 MILLIGRAM, QD
     Route: 048
     Dates: start: 20180503, end: 20180508
  4. OXYCODONE [Concomitant]
     Active Substance: OXYCODONE
     Dosage: 20 MILLIGRAM, Q8H
     Route: 048
     Dates: start: 20180503, end: 20180506
  5. MAGLAX [MAGNESIUM OXIDE] [Concomitant]
     Dosage: 250 MILLIGRAM, Q12H
     Route: 048
     Dates: start: 20180501, end: 20180501
  6. MAGLAX [MAGNESIUM OXIDE] [Concomitant]
     Dosage: 250 MILLIGRAM, Q8H
     Route: 048
     Dates: start: 20180508, end: 20180510
  7. MS CONTIN [Concomitant]
     Active Substance: MORPHINE SULFATE
     Dosage: 30 MILLIGRAM, Q8H
     Route: 048
     Dates: start: 20180510
  8. OPDIVO [Suspect]
     Active Substance: NIVOLUMAB
     Indication: NON-SMALL CELL LUNG CANCER RECURRENT
     Dosage: 3 MILLIGRAM/KILOGRAM
     Route: 041
     Dates: start: 20180502, end: 20180502
  9. LOXONIN [Concomitant]
     Active Substance: LOXOPROFEN SODIUM
     Indication: PRODUCT USED FOR UNKNOWN INDICATION
     Dosage: 60 MILLIGRAM, Q8H
     Route: 048
     Dates: start: 20180429, end: 20180430
  10. LOXONIN [Concomitant]
     Active Substance: LOXOPROFEN SODIUM
     Dosage: 60 MILLIGRAM, Q12H
     Route: 048
     Dates: start: 20180501, end: 20180501
  11. LOXONIN [Concomitant]
     Active Substance: LOXOPROFEN SODIUM
     Dosage: 60 MILLIGRAM, Q8H
     Route: 048
     Dates: start: 20180510
  12. DENOTAS [Concomitant]
     Active Substance: CALCIUM CARBONATE\CHOLECALCIFEROL\MAGNESIUM CARBONATE
     Dosage: 2 DOSAGE FORM, QD
     Dates: start: 20180503, end: 20180508
  13. RINDERON V [Concomitant]
     Active Substance: BETAMETHASONE VALERATE
     Indication: PRODUCT USED FOR UNKNOWN INDICATION
     Dosage: APPROPRIATE AMOUNT, SEVERAL TIMES A DAY
     Route: 061
     Dates: start: 20180506, end: 20180506
  14. MS CONTIN [Concomitant]
     Active Substance: MORPHINE SULFATE
     Indication: PRODUCT USED FOR UNKNOWN INDICATION
     Dosage: 30 MILLIGRAM, Q8H
     Route: 048
     Dates: start: 20180508, end: 20180508
  15. OXINORM [OXYCODONE HYDROCHLORIDE] [Concomitant]
     Active Substance: OXYCODONE HYDROCHLORIDE
     Dosage: 10 MILLIGRAM, PRN
     Route: 048
     Dates: start: 20180506, end: 20180507
  16. NEXIUM [Concomitant]
     Active Substance: ESOMEPRAZOLE MAGNESIUM
     Indication: PRODUCT USED FOR UNKNOWN INDICATION
     Dosage: 20 MILLIGRAM, QD
     Route: 048
     Dates: start: 20180429, end: 20180511
  17. MAGLAX [MAGNESIUM OXIDE] [Concomitant]
     Dosage: 250 MILLIGRAM, Q8H
     Route: 048
     Dates: start: 20180502, end: 20180506
  18. OXINORM [OXYCODONE HYDROCHLORIDE] [Concomitant]
     Active Substance: OXYCODONE HYDROCHLORIDE
     Indication: PAIN
     Dosage: 10 MILLIGRAM, PRN
     Route: 048
     Dates: start: 20180430, end: 20180504
  19. DECADRON (DEXAMETHASONE SODIUM PHOSPHATE) [Concomitant]
     Active Substance: DEXAMETHASONE SODIUM PHOSPHATE
     Dosage: 1 MILLIGRAM, QD
     Route: 048
     Dates: start: 20180503, end: 20180508
  20. DECADRON (DEXAMETHASONE SODIUM PHOSPHATE) [Concomitant]
     Active Substance: DEXAMETHASONE SODIUM PHOSPHATE
     Dosage: 1 MILLIGRAM, QD
     Route: 048
     Dates: start: 20180510
  21. DENOTAS [Concomitant]
     Active Substance: CALCIUM CARBONATE\CHOLECALCIFEROL\MAGNESIUM CARBONATE
     Dosage: 2 DOSAGE FORM, QD
     Route: 048
     Dates: start: 20180510
  22. OXYCODONE [Concomitant]
     Active Substance: OXYCODONE
     Indication: PRODUCT USED FOR UNKNOWN INDICATION
     Dosage: 20 MILLIGRAM, Q8H
     Route: 048
     Dates: start: 20180429, end: 20180501
  23. MAGLAX [MAGNESIUM OXIDE] [Concomitant]
     Dosage: 250 MILLIGRAM, Q8H
     Route: 048
     Dates: start: 20180430, end: 20180430
  24. MAGLAX [MAGNESIUM OXIDE] [Concomitant]
     Dosage: 250 MILLIGRAM, Q12H
     Route: 048
     Dates: start: 20180507, end: 20180507
  25. SYMPROIC [Concomitant]
     Active Substance: NALDEMEDINE
     Dosage: 0.2 MILLIGRAM, QD
     Route: 048
     Dates: start: 20180510, end: 20180510
  26. ACTOSIN [BUCLADESINE SODIUM] [Concomitant]
     Indication: PRODUCT USED FOR UNKNOWN INDICATION
     Dosage: APPROPRIATE AMOUNT, SEVERAL TIMES A DAY
     Dates: start: 20180512, end: 20180512
  27. LOXONIN [Concomitant]
     Active Substance: LOXOPROFEN SODIUM
     Dosage: 60 MILLIGRAM, Q8H
     Route: 048
     Dates: start: 20180503, end: 20180508
  28. SYMPROIC [Concomitant]
     Active Substance: NALDEMEDINE
     Indication: PRODUCT USED FOR UNKNOWN INDICATION
     Dosage: 0.2 MILLIGRAM, QD
     Route: 048
     Dates: start: 20180429, end: 20180501
  29. DECADRON (DEXAMETHASONE SODIUM PHOSPHATE) [Concomitant]
     Active Substance: DEXAMETHASONE SODIUM PHOSPHATE
     Indication: PRODUCT USED FOR UNKNOWN INDICATION
     Dosage: 2 MILLIGRAM, QD
     Route: 048
     Dates: start: 20180429, end: 20180501
  30. DENOTAS [Concomitant]
     Active Substance: CALCIUM CARBONATE\CHOLECALCIFEROL\MAGNESIUM CARBONATE
     Indication: PRODUCT USED FOR UNKNOWN INDICATION
     Dosage: 2 DOSAGE FORM, QD
     Route: 048
     Dates: start: 20180429, end: 20180501
  31. BELSOMRA [Concomitant]
     Active Substance: SUVOREXANT
     Indication: PAIN
     Dosage: 20 MILLIGRAM, PRN
     Route: 048
     Dates: start: 20180429, end: 20180501

REACTIONS (7)
  - Malignant neoplasm progression [Fatal]
  - Interstitial lung disease [Unknown]
  - Delirium [Unknown]
  - Substance-induced psychotic disorder [Unknown]
  - Rash [Recovered/Resolved]
  - Pyrexia [Recovered/Resolved]
  - Lung disorder [Fatal]

NARRATIVE: CASE EVENT DATE: 20180504
